FAERS Safety Report 6495196-4 (Version None)
Quarter: 2009Q4

REPORT INFORMATION
  Report Type: 
  Country: None (occurrence: None)
  Receive Date: 20091214
  Receipt Date: 20090512
  Transmission Date: 20100525
  Serious: Yes (Other)
  Sender: FDA-Public Use
  Company Number: US-BRISTOL-MYERS SQUIBB COMPANY-14620629

PATIENT
  Age: 45 Year
  Sex: Female
  Weight: 88 kg

DRUGS (15)
  1. ABILIFY [Suspect]
     Indication: MAJOR DEPRESSION
     Dosage: HALF TABLET
     Route: 048
     Dates: start: 20090418, end: 20090507
  2. REQUIP [Concomitant]
  3. LORAZEPAM [Concomitant]
  4. MORPHINE [Concomitant]
     Dosage: MORPHINE IR TABLET
  5. ZOFRAN [Concomitant]
     Indication: MIGRAINE
  6. ZOMIG [Concomitant]
  7. EFFEXOR XR [Concomitant]
  8. TOPAMAX [Concomitant]
  9. LEVOTHYROXINE SODIUM [Concomitant]
  10. ALLEGRA D 24 HOUR [Concomitant]
  11. ACIPHEX [Concomitant]
  12. AVINZA [Concomitant]
  13. VITAMIN D [Concomitant]
     Dosage: AS NEEDED
  14. AXERT [Concomitant]
  15. TREXIMET [Concomitant]

REACTIONS (2)
  - AKATHISIA [None]
  - BURNING SENSATION [None]
